FAERS Safety Report 17940131 (Version 1)
Quarter: 2020Q2

REPORT INFORMATION
  Report Type: Spontaneous
  Country: DE (occurrence: DE)
  Receive Date: 20200625
  Receipt Date: 20200625
  Transmission Date: 20200714
  Serious: Yes (Hospitalization)
  Sender: FDA-Public Use
  Company Number: DE-SA-2020SA156720

PATIENT

DRUGS (8)
  1. VITAMIN B1 [Concomitant]
     Active Substance: THIAMINE HYDROCHLORIDE
     Dosage: UNK UNK, QD (1-0-0-0)
     Route: 048
  2. NALOXONE HYDROCHLORIDE/TILIDINE HYDROCHLORIDE [Suspect]
     Active Substance: NALOXONE HYDROCHLORIDE\TILIDINE HYDROCHLORIDE
     Dosage: 4|50 MG, 1-1-1-0, TABLET
     Route: 048
  3. MELPERON [Concomitant]
     Active Substance: MELPERONE
     Dosage: 50 MG, QD (50 MG, 0-0-1-0)
     Route: 048
  4. VITAMIN B6 [Concomitant]
     Active Substance: PYRIDOXINE HYDROCHLORIDE
     Dosage: 100 MG, QD (100 MG, 1-0-0-0,)
     Route: 048
  5. VITAMIN D [COLECALCIFEROL] [Concomitant]
     Active Substance: CHOLECALCIFEROL
     Dosage: 1000 IE, 1-0-0-0
     Route: 048
  6. UNIZINK [Concomitant]
     Active Substance: AVOBENZONE\HOMOSALATE\OCTISALATE
     Dosage: 50 MG, QD (50 MG, 1-0-0-0,)
     Route: 048
  7. ZOLPIDEM TARTRATE. [Suspect]
     Active Substance: ZOLPIDEM TARTRATE
     Dosage: 5 MG, QD (5 MG, 0-0-1-0)
     Route: 048
  8. PROPRANOLOL HYDROCHLORIDE. [Suspect]
     Active Substance: PROPRANOLOL HYDROCHLORIDE
     Dosage: 10 MG, BID (10 MG, 1-0-1-0)
     Route: 048

REACTIONS (4)
  - Accidental overdose [Unknown]
  - Fall [Unknown]
  - General physical health deterioration [Unknown]
  - Dizziness [Unknown]
